FAERS Safety Report 4338543-1 (Version None)
Quarter: 2004Q2

REPORT INFORMATION
  Report Type: 
  Country: None (occurrence: None)
  Receive Date: 20040407
  Receipt Date: 20040325
  Transmission Date: 20050107
  Serious: Yes (Death, Hospitalization)
  Sender: FDA-Public Use
  Company Number: 2004018270

PATIENT
  Age: 22 Year
  Sex: Male

DRUGS (3)
  1. ZELDOX [Suspect]
     Indication: SCHIZOPHRENIA
     Dosage: 200 MG (BID), ORAL
     Route: 048
     Dates: start: 20040101, end: 20040202
  2. HALOPERIDOL [Concomitant]
  3. CLONAZEPAM [Concomitant]

REACTIONS (6)
  - AGITATION [None]
  - CARDIAC ARREST [None]
  - INTENTIONAL OVERDOSE [None]
  - MEDICATION ERROR [None]
  - PULMONARY EMBOLISM [None]
  - RESTLESSNESS [None]
